FAERS Safety Report 15375563 (Version 1)
Quarter: 2018Q3

REPORT INFORMATION
  Report Type: Spontaneous
  Country: FR (occurrence: FR)
  Receive Date: 20180912
  Receipt Date: 20180912
  Transmission Date: 20181010
  Serious: Yes (Other)
  Sender: FDA-Public Use
  Company Number: FR-GILEAD-2018-0361922

PATIENT
  Age: 75 Year
  Sex: Male
  Weight: 60 kg

DRUGS (8)
  1. ZYDELIG [Suspect]
     Active Substance: IDELALISIB
     Indication: CHRONIC LYMPHOCYTIC LEUKAEMIA (IN REMISSION)
     Route: 048
  2. INSULINE                           /01223401/ [Concomitant]
     Active Substance: INSULIN NOS
  3. XATRAL                             /00975301/ [Concomitant]
     Active Substance: ALFUZOSIN
  4. LYRICA [Concomitant]
     Active Substance: PREGABALIN
  5. TADENAN [Concomitant]
     Active Substance: PYGEUM
  6. TAHOR [Concomitant]
     Active Substance: ATORVASTATIN CALCIUM
  7. KARDEGIC [Concomitant]
     Active Substance: ASPIRIN DL-LYSINE
  8. ATENOLOL. [Concomitant]
     Active Substance: ATENOLOL

REACTIONS (3)
  - Oropharyngeal pain [Not Recovered/Not Resolved]
  - Mouth ulceration [Not Recovered/Not Resolved]
  - Pyrexia [Not Recovered/Not Resolved]

NARRATIVE: CASE EVENT DATE: 201807
